FAERS Safety Report 4276041-4 (Version None)
Quarter: 2004Q1

REPORT INFORMATION
  Report Type: 
  Country: None (occurrence: None)
  Receive Date: 20040121
  Receipt Date: 20030702
  Transmission Date: 20041129
  Serious: No
  Sender: FDA-Public Use
  Company Number: US-GLAXOSMITHKLINE-A0416356A

PATIENT
  Age: 44 Year
  Sex: Female

DRUGS (2)
  1. VALTREX [Suspect]
     Indication: ANTIVIRAL PROPHYLAXIS
     Dosage: 500MG PER DAY
     Route: 048
  2. STEROID CREAM [Concomitant]
     Route: 065

REACTIONS (4)
  - DRUG RESISTANCE [None]
  - HYPERPLASIA [None]
  - ILL-DEFINED DISORDER [None]
  - VAGINAL LESION [None]
